FAERS Safety Report 10638602 (Version 1)
Quarter: 2014Q4

REPORT INFORMATION
  Report Type: Spontaneous
  Country: GB (occurrence: GB)
  Receive Date: 20141208
  Receipt Date: 20141208
  Transmission Date: 20150529
  Serious: Yes (Other)
  Sender: FDA-Public Use
  Company Number: PHHY2014GB157958

PATIENT
  Age: 72 Year
  Sex: Female
  Weight: 75 kg

DRUGS (14)
  1. AMOXICILLIN. [Concomitant]
     Active Substance: AMOXICILLIN
     Dates: start: 20140903, end: 20140918
  2. FELODIPINE. [Concomitant]
     Active Substance: FELODIPINE
     Dates: start: 20141002, end: 20141112
  3. SALBUTAMOL [Concomitant]
     Active Substance: ALBUTEROL
     Dates: start: 20140815
  4. SERETIDE [Concomitant]
     Active Substance: FLUTICASONE FUROATE\SALMETEROL XINAFOATE
     Dates: start: 20140815
  5. FELODIPINE. [Concomitant]
     Active Substance: FELODIPINE
     Dates: start: 20140815, end: 20140912
  6. LANSOPRAZOLE. [Concomitant]
     Active Substance: LANSOPRAZOLE
     Dates: start: 20140815
  7. TEARS NATURALE [Concomitant]
     Dates: start: 20140815, end: 20141117
  8. DOXYCYCLINE. [Suspect]
     Active Substance: DOXYCYCLINE
     Dates: start: 20141003, end: 20141010
  9. CLARITHROMYCIN. [Concomitant]
     Active Substance: CLARITHROMYCIN
     Dates: start: 20140930, end: 20141007
  10. LISINOPRIL. [Concomitant]
     Active Substance: LISINOPRIL
     Dates: start: 20140815
  11. CO-AMOXICLAV [Concomitant]
     Active Substance: AMOXICILLIN\CLAVULANIC ACID
     Dates: start: 20141006, end: 20141013
  12. SIMVASTATIN. [Concomitant]
     Active Substance: SIMVASTATIN
     Dates: start: 20140815
  13. TRAMADOL [Concomitant]
     Active Substance: TRAMADOL
     Dates: start: 20141020, end: 20141117
  14. PARACETAMOL [Concomitant]
     Active Substance: ACETAMINOPHEN
     Dates: start: 20140815

REACTIONS (2)
  - Abdominal pain [Recovered/Resolved]
  - Malaise [Recovered/Resolved]
